FAERS Safety Report 12927738 (Version 1)
Quarter: 2016Q4

REPORT INFORMATION
  Report Type: Spontaneous
  Country: US (occurrence: US)
  Receive Date: 20161109
  Receipt Date: 20161109
  Transmission Date: 20170207
  Serious: Yes (Life-Threatening, Disabling)
  Sender: FDA-Public Use
  Company Number: None

PATIENT
  Age: 30 Year
  Sex: Female
  Weight: 52.16 kg

DRUGS (4)
  1. TRAZODONE [Concomitant]
     Active Substance: TRAZODONE HYDROCHLORIDE
  2. MIRENA [Suspect]
     Active Substance: LEVONORGESTREL
     Indication: CONTRACEPTION
     Route: 067
     Dates: start: 20150401
  3. ONE-A-DAY WOMEN^S MULTIVITAMIN [Concomitant]
  4. PRISTIQ EXTENDED-RELEASE [Concomitant]
     Active Substance: DESVENLAFAXINE SUCCINATE

REACTIONS (6)
  - Impaired work ability [None]
  - Suicidal ideation [None]
  - Apathy [None]
  - Alopecia [None]
  - Disturbance in attention [None]
  - Anxiety [None]

NARRATIVE: CASE EVENT DATE: 20161109
